FAERS Safety Report 5255013-7 (Version None)
Quarter: 2007Q1

REPORT INFORMATION
  Report Type: 
  Country: None (occurrence: None)
  Receive Date: 20070305
  Receipt Date: 20070228
  Transmission Date: 20070707
  Serious: Yes (Hospitalization)
  Sender: FDA-Public Use
  Company Number: FR-BRISTOL-MYERS SQUIBB COMPANY-13684477

PATIENT
  Age: 61 Year
  Sex: Female

DRUGS (6)
  1. ENDOXAN [Suspect]
     Indication: ACUTE MYELOID LEUKAEMIA
     Route: 042
     Dates: start: 20061128, end: 20061219
  2. UROMITEXAN [Suspect]
     Indication: ACUTE MYELOID LEUKAEMIA
     Route: 042
     Dates: start: 20061128, end: 20061219
  3. METHOTREXATE [Suspect]
     Indication: ACUTE MYELOID LEUKAEMIA
     Route: 042
     Dates: start: 20061205, end: 20061223
  4. DAUNORUBICIN HCL [Suspect]
     Indication: ACUTE MYELOID LEUKAEMIA
     Route: 042
     Dates: start: 20061128, end: 20061219
  5. CORTANCYL [Suspect]
     Indication: ACUTE MYELOID LEUKAEMIA
     Route: 042
     Dates: start: 20061128, end: 20061219
  6. VINCRISTINE [Suspect]
     Indication: ACUTE MYELOID LEUKAEMIA
     Route: 042
     Dates: start: 20061128, end: 20061219

REACTIONS (5)
  - AFFECT LABILITY [None]
  - AGITATION [None]
  - DISINHIBITION [None]
  - HALLUCINATION [None]
  - LOGORRHOEA [None]
